FAERS Safety Report 12720685 (Version 1)
Quarter: 2016Q3

REPORT INFORMATION
  Report Type: Spontaneous
  Country: CN (occurrence: CN)
  Receive Date: 20160907
  Receipt Date: 20160907
  Transmission Date: 20161109
  Serious: Yes (Other)
  Sender: FDA-Public Use
  Company Number: CN-TAKEDA-2016MPI007765

PATIENT

DRUGS (3)
  1. THALIDOMIDE [Suspect]
     Active Substance: THALIDOMIDE
     Dosage: UNK
     Route: 048
  2. VELCADE [Suspect]
     Active Substance: BORTEZOMIB
     Indication: PLASMA CELL MYELOMA
     Dosage: 1.3 MG/M2, UNK
     Route: 042
  3. THALIDOMIDE [Suspect]
     Active Substance: THALIDOMIDE
     Indication: PLASMA CELL MYELOMA
     Dosage: 100 MG, QD
     Route: 048

REACTIONS (24)
  - Nausea [Unknown]
  - Anaemia [Unknown]
  - Dizziness [Unknown]
  - Arrhythmia [Unknown]
  - Tumour lysis syndrome [Unknown]
  - Oedema [Unknown]
  - Cough [Unknown]
  - Thrombocytopenia [Unknown]
  - Pneumonia [Unknown]
  - Fatigue [Unknown]
  - Rash [Unknown]
  - Diarrhoea [Unknown]
  - Infection [Unknown]
  - Proteinuria [Unknown]
  - Hepatic function abnormal [Unknown]
  - Hypotension [Unknown]
  - Asthma [Unknown]
  - Constipation [Unknown]
  - Abdominal pain upper [Unknown]
  - Pyrexia [Unknown]
  - Hypertension [Unknown]
  - Neutropenia [Unknown]
  - Neuropathy peripheral [Unknown]
  - Herpes zoster [Unknown]
